FAERS Safety Report 13330952 (Version 2)
Quarter: 2017Q4

REPORT INFORMATION
  Report Type: Report from Study
  Country: US (occurrence: US)
  Receive Date: 20170314
  Receipt Date: 20171123
  Transmission Date: 20180320
  Serious: No
  Sender: FDA-Public Use
  Company Number: US-ALEXION PHARMACEUTICALS INC.-A201702375

PATIENT
  Age: 34 Year
  Sex: Female

DRUGS (1)
  1. STRENSIQ [Suspect]
     Active Substance: ASFOTASE ALFA
     Indication: HYPOPHOSPHATASIA
     Route: 058

REACTIONS (7)
  - Rash [Unknown]
  - Local reaction [Unknown]
  - Foot fracture [Unknown]
  - C-reactive protein increased [Unknown]
  - Urticaria [Unknown]
  - Injection site reaction [Unknown]
  - Pathological fracture [Not Recovered/Not Resolved]
